FAERS Safety Report 6369920-5 (Version None)
Quarter: 2009Q3

REPORT INFORMATION
  Report Type: 
  Country: None (occurrence: None)
  Receive Date: 20090923
  Receipt Date: 20071109
  Transmission Date: 20100115
  Serious: No
  Sender: FDA-Public Use
  Company Number: US-ASTRAZENECA-2006UW10850

PATIENT
  Age: 13230 Day
  Sex: Male
  Weight: 124.3 kg

DRUGS (21)
  1. SEROQUEL [Suspect]
     Indication: SCHIZOPHRENIA
     Dosage: 50-900 MG
     Route: 048
     Dates: start: 20030110
  2. SEROQUEL [Suspect]
     Indication: DEPRESSION
     Dosage: 50-900 MG
     Route: 048
     Dates: start: 20030110
  3. SEROQUEL [Suspect]
     Indication: BIPOLAR DISORDER
     Dosage: 50-900 MG
     Route: 048
     Dates: start: 20030110
  4. SEROQUEL [Suspect]
     Indication: INSOMNIA
     Dosage: 50-900 MG
     Route: 048
     Dates: start: 20030110
  5. SEROQUEL [Suspect]
     Indication: PSYCHOTIC DISORDER
     Dosage: 50-900 MG
     Route: 048
     Dates: start: 20030110
  6. NAVANE [Concomitant]
     Route: 065
  7. RISPERDAL [Concomitant]
     Route: 065
  8. AMBIEN CR [Concomitant]
     Route: 048
  9. ZOLOFT [Concomitant]
     Dosage: 50 MG, 100MG, 200MG DAILY
     Route: 048
  10. LUNESTA [Concomitant]
     Route: 048
  11. ZOCOR [Concomitant]
     Route: 065
  12. AVANDIA [Concomitant]
     Route: 048
  13. REMERON [Concomitant]
     Dosage: 15MG, 30MG, 45MG AT NIGHT
     Route: 065
  14. AMANTADINE HCL [Concomitant]
     Route: 065
  15. TOPAMAX [Concomitant]
     Route: 048
  16. ABILIFY [Concomitant]
     Route: 065
  17. GLUCOPHAGE XR [Concomitant]
     Route: 065
  18. ASPIRIN [Concomitant]
     Route: 065
  19. IMDUR [Concomitant]
     Route: 065
  20. NORVASC [Concomitant]
     Route: 065
  21. VALPROIC ACID [Concomitant]
     Dosage: 250MG, 500MG TWO TIMES A DAY
     Route: 048

REACTIONS (12)
  - CHEST PAIN [None]
  - DEPRESSION [None]
  - DIABETES MELLITUS [None]
  - HALLUCINATION [None]
  - IMPULSE-CONTROL DISORDER [None]
  - IRRITABILITY [None]
  - LOSS OF CONSCIOUSNESS [None]
  - NASOPHARYNGITIS [None]
  - NAUSEA [None]
  - PARANOIA [None]
  - TOOTH EXTRACTION [None]
  - WEIGHT INCREASED [None]
